FAERS Safety Report 24827948 (Version 1)
Quarter: 2025Q1

REPORT INFORMATION
  Report Type: Spontaneous
  Country: FR (occurrence: FR)
  Receive Date: 20250109
  Receipt Date: 20250109
  Transmission Date: 20250408
  Serious: Yes (Other)
  Sender: PFIZER
  Company Number: None

PATIENT
  Age: 24 Year
  Sex: Male

DRUGS (3)
  1. CLINDAMYCIN [Suspect]
     Active Substance: CLINDAMYCIN
     Indication: Arthritis infective
     Dosage: 600 MG, 4X/DAY
     Route: 048
     Dates: start: 20240715
  2. TEICOPLANIN [Suspect]
     Active Substance: TEICOPLANIN
     Indication: Arthritis infective
     Dosage: 1 G, 2X/DAY
     Route: 042
     Dates: start: 20240715
  3. XARELTO [Suspect]
     Active Substance: RIVAROXABAN
     Indication: Antiphospholipid syndrome
     Dosage: 20 MG, 1X/DAY
     Route: 048
     Dates: start: 20240722

REACTIONS (1)
  - Pancytopenia [Unknown]

NARRATIVE: CASE EVENT DATE: 20240729
